FAERS Safety Report 7688633 (Version 2)
Quarter: 2013Q3

REPORT INFORMATION
  Report Type: Spontaneous
  Country: US (occurrence: US)
  Receive Date: 20101201
  Receipt Date: 20130921
  Transmission Date: 20140515
  Serious: Yes (Other)
  Sender: FDA-Public Use
  Company Number: US-ROCHE-722607

PATIENT
  Age: 37 Year
  Sex: Male

DRUGS (6)
  1. ACCUTANE [Suspect]
     Indication: ACNE
     Route: 065
  2. ACCUTANE [Suspect]
     Route: 065
  3. ACCUTANE [Suspect]
     Route: 065
     Dates: start: 20020819, end: 200301
  4. HYTONE CREAM [Concomitant]
     Indication: DRY SKIN
     Route: 065
  5. CETAPHIL CREAM [Concomitant]
     Indication: DRY SKIN
     Route: 065
  6. LOCOID [Concomitant]
     Indication: LIP DRY
     Route: 065

REACTIONS (17)
  - Crohn^s disease [Unknown]
  - Gastrointestinal injury [Unknown]
  - Depression [Unknown]
  - Inflammatory bowel disease [Unknown]
  - Intestinal haemorrhage [Unknown]
  - Haemorrhoids [Unknown]
  - Anal pruritus [Unknown]
  - Anal fissure [Unknown]
  - Diverticulum [Unknown]
  - Somnolence [Unknown]
  - Dry eye [Unknown]
  - Alopecia [Unknown]
  - Pruritus [Unknown]
  - Xerosis [Unknown]
  - Tendonitis [Unknown]
  - Arthralgia [Unknown]
  - Chronic fatigue syndrome [Unknown]
